FAERS Safety Report 9090908 (Version 15)
Quarter: 2014Q3

REPORT INFORMATION
  Report Type: Spontaneous
  Country: IE (occurrence: IE)
  Receive Date: 20130131
  Receipt Date: 20140924
  Transmission Date: 20150326
  Serious: Yes (Death, Hospitalization, Other)
  Sender: FDA-Public Use
  Company Number: PHFR2013IE000917

PATIENT
  Age: 46 Year
  Sex: Male

DRUGS (10)
  1. IDEOS [Concomitant]
     Active Substance: CALCIUM CARBONATE\CHOLECALCIFEROL
     Dosage: 500 MG, BD
  2. CLOZARIL [Suspect]
     Active Substance: CLOZAPINE
     Indication: OFF LABEL USE
     Dosage: 300 MG
     Route: 048
     Dates: start: 20130129
  3. DEXAMETHASONE. [Concomitant]
     Active Substance: DEXAMETHASONE
     Dosage: UNK UKN, BID
  4. LANSOPRAZOLE. [Concomitant]
     Active Substance: LANSOPRAZOLE
     Dosage: 30 MG, UNK
  5. LIPITOR [Concomitant]
     Active Substance: ATORVASTATIN CALCIUM
     Dosage: 10 MG, NOCTE
  6. OMEPRAZOLE. [Concomitant]
     Active Substance: OMEPRAZOLE
     Dosage: UNK UKN, UNK
  7. AVASTIN [Concomitant]
     Active Substance: BEVACIZUMAB
     Indication: OFF LABEL USE
  8. CLOZARIL [Suspect]
     Active Substance: CLOZAPINE
     Indication: SCHIZOPHRENIA
     Dosage: 300 MG
     Route: 048
     Dates: start: 20010701
  9. SENNA [Concomitant]
     Active Substance: SENNA LEAF\SENNOSIDES\SENNOSIDES A AND B
     Dosage: UNK, NOCTE
  10. AVASTIN [Concomitant]
     Active Substance: BEVACIZUMAB
     Indication: MENTAL DISORDER
     Dosage: UNK

REACTIONS (6)
  - Glioblastoma multiforme [Fatal]
  - White blood cell count increased [Unknown]
  - Terminal state [Fatal]
  - Headache [Fatal]
  - Eosinophil count increased [Recovered/Resolved]
  - Neutrophil count increased [Unknown]

NARRATIVE: CASE EVENT DATE: 20130125
